FAERS Safety Report 6235469-3 (Version None)
Quarter: 2009Q2

REPORT INFORMATION
  Report Type: 
  Country: None (occurrence: None)
  Receive Date: 20090618
  Receipt Date: 20080326
  Transmission Date: 20091009
  Serious: No
  Sender: FDA-Public Use
  Company Number: US-ASTRAZENECA-2008UW06106

PATIENT
  Age: 82 Year
  Sex: Male
  Weight: 86.2 kg

DRUGS (3)
  1. RHINOCORT [Suspect]
     Indication: POLYP
     Route: 045
  2. ATENOLOL [Concomitant]
  3. RANITIDINE [Concomitant]

REACTIONS (1)
  - HYPERSENSITIVITY [None]
